FAERS Safety Report 4443246-9 (Version None)
Quarter: 2004Q3

REPORT INFORMATION
  Report Type: 
  Country: None (occurrence: None)
  Receive Date: 20040728
  Receipt Date: 20040513
  Transmission Date: 20050211
  Serious: No
  Sender: FDA-Public Use
  Company Number: USA040567555

PATIENT
  Sex: Female

DRUGS (2)
  1. STRATTERA [Suspect]
     Indication: ATTENTION DEFICIT/HYPERACTIVITY DISORDER
     Dosage: 40 MG
     Dates: start: 20040401
  2. WELLBUTRIN [Concomitant]

REACTIONS (4)
  - HYPOKINESIA [None]
  - INSOMNIA [None]
  - MIGRAINE [None]
  - SOMNOLENCE [None]
